FAERS Safety Report 25795250 (Version 2)
Quarter: 2025Q3

REPORT INFORMATION
  Report Type: Spontaneous
  Country: BR (occurrence: BR)
  Receive Date: 20250912
  Receipt Date: 20250916
  Transmission Date: 20251021
  Serious: Yes (Other)
  Sender: MYLAN
  Company Number: BR-VIATRISJAPAN-2025M1076171AA

PATIENT
  Age: 73 Year
  Sex: Female
  Weight: 67 kg

DRUGS (12)
  1. XALATAN [Suspect]
     Active Substance: LATANOPROST
     Indication: Glaucoma
     Dosage: 1 GTT DROP, PM (AT NIGHT)
     Route: 047
     Dates: start: 2017
  2. XALATAN [Suspect]
     Active Substance: LATANOPROST
     Dosage: 1 GTT DROP, PM (AT NIGHT)
     Dates: start: 2017
  3. XALATAN [Suspect]
     Active Substance: LATANOPROST
     Dosage: 1 GTT DROP, PM (AT NIGHT)
     Dates: start: 2017
  4. XALATAN [Suspect]
     Active Substance: LATANOPROST
     Dosage: 1 GTT DROP, PM (AT NIGHT)
     Route: 047
     Dates: start: 2017
  5. XALATAN [Suspect]
     Active Substance: LATANOPROST
     Dosage: 1 GTT DROP, AM (IN MORNING)
     Route: 047
  6. XALATAN [Suspect]
     Active Substance: LATANOPROST
     Dosage: 1 GTT DROP, AM (IN MORNING)
  7. XALATAN [Suspect]
     Active Substance: LATANOPROST
     Dosage: 1 GTT DROP, AM (IN MORNING)
  8. XALATAN [Suspect]
     Active Substance: LATANOPROST
     Dosage: 1 GTT DROP, AM (IN MORNING)
     Route: 047
  9. LATANOPROST\TIMOLOL MALEATE [Suspect]
     Active Substance: LATANOPROST\TIMOLOL MALEATE
     Indication: Glaucoma
  10. LATANOPROST\TIMOLOL MALEATE [Suspect]
     Active Substance: LATANOPROST\TIMOLOL MALEATE
     Route: 065
  11. LATANOPROST\TIMOLOL MALEATE [Suspect]
     Active Substance: LATANOPROST\TIMOLOL MALEATE
     Route: 065
  12. LATANOPROST\TIMOLOL MALEATE [Suspect]
     Active Substance: LATANOPROST\TIMOLOL MALEATE

REACTIONS (4)
  - Cataract [Unknown]
  - Eye disorder [Not Recovered/Not Resolved]
  - Eye pain [Recovered/Resolved]
  - Product dispensing error [Unknown]

NARRATIVE: CASE EVENT DATE: 20250902
